FAERS Safety Report 10458065 (Version 4)
Quarter: 2014Q4

REPORT INFORMATION
  Report Type: Spontaneous
  Country: US (occurrence: US)
  Receive Date: 20140917
  Receipt Date: 20141024
  Transmission Date: 20150528
  Serious: Yes (Other)
  Sender: FDA-Public Use
  Company Number: US-AMGEN-USASP2014040909

PATIENT
  Age: 66 Year
  Sex: Female

DRUGS (1)
  1. ENBREL [Suspect]
     Active Substance: ETANERCEPT
     Indication: PSORIATIC ARTHROPATHY
     Dosage: 2 VIALS 25MG ONCE  WEEKLY
     Route: 065
     Dates: start: 20060101

REACTIONS (5)
  - Latent tuberculosis [Not Recovered/Not Resolved]
  - Onycholysis [Not Recovered/Not Resolved]
  - Inflammation [Not Recovered/Not Resolved]
  - Skin plaque [Not Recovered/Not Resolved]
  - Temporomandibular joint syndrome [Not Recovered/Not Resolved]

NARRATIVE: CASE EVENT DATE: 2006
